FAERS Safety Report 5488929-7 (Version None)
Quarter: 2007Q4

REPORT INFORMATION
  Report Type: 
  Country: None (occurrence: None)
  Receive Date: 20071016
  Receipt Date: 20070928
  Transmission Date: 20080405
  Serious: Yes (Death, Life-Threatening, Other)
  Sender: FDA-Public Use
  Company Number: 2007SP019937

PATIENT
  Age: 83 Year
  Sex: Female

DRUGS (8)
  1. RINDERON-VG (BETAMETHASONE VALERATE/GENTAMICIN SULFATE) (BETAMETHASONE [Suspect]
     Indication: DERMATITIS CONTACT
     Dosage: 10 MG, QD
     Dates: start: 20060912, end: 20060914
  2. BAKTAR (SULFAMETHOXAZOLE/TRIMETHOPRIM) (NO PREF. NAME) [Suspect]
     Indication: PNEUMOCYSTIS JIROVECI PNEUMONIA
     Dosage: 2 DF, QD; PO
     Route: 048
     Dates: start: 20060617, end: 20060914
  3. TAGAMET [Suspect]
     Indication: GASTRITIS
     Dosage: 400 MG;QD;PO
     Route: 048
     Dates: start: 20060131, end: 20060914
  4. STROMECTOL (OVERMECTIN) (NO PREF. NAME) [Suspect]
     Indication: ACARODERMATITIS
     Dosage: 9 MG, QD; PO
     Route: 048
     Dates: start: 20060905, end: 20060905
  5. BASEN [Concomitant]
  6. NORVASC [Concomitant]
  7. PREDNISOLONE [Concomitant]
  8. EURAX [Concomitant]

REACTIONS (8)
  - ALTERED STATE OF CONSCIOUSNESS [None]
  - CONDITION AGGRAVATED [None]
  - DIALYSIS [None]
  - DISSEMINATED INTRAVASCULAR COAGULATION [None]
  - MULTI-ORGAN FAILURE [None]
  - RASH PAPULAR [None]
  - RENAL FAILURE ACUTE [None]
  - TOXIC EPIDERMAL NECROLYSIS [None]
